FAERS Safety Report 19909143 (Version 1)
Quarter: 2021Q4

REPORT INFORMATION
  Report Type: Spontaneous
  Country: US (occurrence: US)
  Receive Date: 20211001
  Receipt Date: 20211001
  Transmission Date: 20220303
  Serious: Yes (Other)
  Sender: FDA-Public Use
  Company Number: US-ALXN-A202110721

PATIENT
  Sex: Male

DRUGS (1)
  1. ULTOMIRIS [Suspect]
     Active Substance: RAVULIZUMAB-CWVZ
     Indication: Paroxysmal nocturnal haemoglobinuria
     Dosage: 3600 MG, UNK
     Route: 042
     Dates: start: 20210721

REACTIONS (1)
  - Breakthrough haemolysis [Not Recovered/Not Resolved]

NARRATIVE: CASE EVENT DATE: 20210923
